FAERS Safety Report 20496802 (Version 1)
Quarter: 2022Q1

REPORT INFORMATION
  Report Type: Spontaneous
  Country: JP (occurrence: JP)
  Receive Date: 20220221
  Receipt Date: 20220221
  Transmission Date: 20220423
  Serious: Yes (Other)
  Sender: FDA-Public Use
  Company Number: JP-DSPHARMA-2021DSP018605

PATIENT
  Age: 68 Year
  Sex: Female

DRUGS (10)
  1. LATUDA [Suspect]
     Active Substance: LURASIDONE HYDROCHLORIDE
     Indication: Schizophrenia
     Dosage: 40 MG, QD
     Route: 048
     Dates: start: 20210414
  2. LATUDA [Suspect]
     Active Substance: LURASIDONE HYDROCHLORIDE
     Dosage: 80 MG, QD
     Route: 048
  3. BLONANSERIN [Suspect]
     Active Substance: BLONANSERIN
     Indication: Schizophrenia
     Dosage: 40 MG, QD
     Route: 062
     Dates: start: 20210613
  4. AKINETON [Suspect]
     Active Substance: BIPERIDEN HYDROCHLORIDE
     Indication: Product used for unknown indication
     Dosage: 2 MG, QD
     Route: 065
  5. LEVOMEPROMAZINE MALEATE [Suspect]
     Active Substance: LEVOMEPROMAZINE MALEATE
     Indication: Schizophrenia
     Dosage: 5 MG, QD
     Route: 048
  6. LEVOMEPROMAZINE MALEATE [Suspect]
     Active Substance: LEVOMEPROMAZINE MALEATE
     Dosage: 25 MG, QD
     Route: 048
  7. LEVOMEPROMAZINE MALEATE [Suspect]
     Active Substance: LEVOMEPROMAZINE MALEATE
     Dosage: 10 MG, QD
     Route: 048
  8. LEVOMEPROMAZINE MALEATE [Suspect]
     Active Substance: LEVOMEPROMAZINE MALEATE
     Dosage: 25 MG, QD
     Route: 048
  9. ETIZOLAM [Suspect]
     Active Substance: ETIZOLAM
     Indication: Schizophrenia
     Dosage: 3 MG, QD
     Route: 048
  10. ETIZOLAM [Suspect]
     Active Substance: ETIZOLAM
     Dosage: 1.5 MG, QD
     Route: 048

REACTIONS (8)
  - Hallucination [Unknown]
  - Decreased appetite [Recovered/Resolved]
  - Increased appetite [Recovered/Resolved]
  - Aversion [Unknown]
  - Somnolence [Unknown]
  - Paranoia [Unknown]
  - Therapeutic response decreased [Unknown]
  - Therapy interrupted [Unknown]

NARRATIVE: CASE EVENT DATE: 20210418
